FAERS Safety Report 23705472 (Version 2)
Quarter: 2024Q3

REPORT INFORMATION
  Report Type: Spontaneous
  Country: US (occurrence: US)
  Receive Date: 20240404
  Receipt Date: 20240806
  Transmission Date: 20241017
  Serious: No
  Sender: SANOFI AVENTIS
  Company Number: US-SA-SAC20240402000371

PATIENT
  Age: 77 Year
  Sex: Female

DRUGS (2)
  1. DUPIXENT [Suspect]
     Active Substance: DUPILUMAB
     Indication: Asthma
     Dosage: 300 MG, QOW
     Route: 058
  2. REPATHA [Concomitant]
     Active Substance: EVOLOCUMAB
     Indication: Blood cholesterol abnormal
     Dosage: UNK

REACTIONS (6)
  - Dyspnoea exertional [Unknown]
  - Alopecia [Recovering/Resolving]
  - Upper respiratory tract infection [Unknown]
  - Injection site discolouration [Unknown]
  - Dyspnoea [Unknown]
  - Injection site erythema [Unknown]
